FAERS Safety Report 8220849-7 (Version None)
Quarter: 2012Q1

REPORT INFORMATION
  Report Type: 
  Country: None (occurrence: None)
  Receive Date: 20120320
  Receipt Date: 20120319
  Transmission Date: 20120608
  Serious: Yes (Other)
  Sender: FDA-Public Use
  Company Number: US-PFIZER INC-2012071459

PATIENT
  Sex: Female
  Weight: 53.5 kg

DRUGS (6)
  1. CHANTIX [Suspect]
     Indication: SMOKING CESSATION THERAPY
     Dosage: UNK
     Route: 048
     Dates: start: 20070101
  2. ROXICODONE [Concomitant]
     Indication: PAIN IN EXTREMITY
  3. CHANTIX [Suspect]
     Dosage: 1 MG, UNK
     Route: 048
  4. ROXICODONE [Concomitant]
     Indication: MUSCULOSKELETAL PAIN
  5. ROXICODONE [Concomitant]
     Indication: BACK PAIN
     Dosage: SPLITTING 30 MG TABLET INTO HALF AS NEEDED
     Route: 048
  6. LAMOTRIGINE [Concomitant]
     Indication: BIPOLAR DISORDER
     Dosage: 75 MG, DAILY

REACTIONS (3)
  - PHARYNGEAL DISORDER [None]
  - NAUSEA [None]
  - DYSPHONIA [None]
